FAERS Safety Report 25315607 (Version 1)
Quarter: 2025Q2

REPORT INFORMATION
  Report Type: Report from Study
  Country: US (occurrence: US)
  Receive Date: 20250514
  Receipt Date: 20250514
  Transmission Date: 20250717
  Serious: Yes (Other)
  Sender: ALEXION PHARMACEUTICALS
  Company Number: US-AstraZeneca-CH-00868806A

PATIENT
  Weight: 83 kg

DRUGS (11)
  1. ACALABRUTINIB [Suspect]
     Active Substance: ACALABRUTINIB
     Indication: Chronic lymphocytic leukaemia
     Dosage: 100 MILLIGRAM, BID
  2. ALPRAZOLAM [Concomitant]
     Active Substance: ALPRAZOLAM
  3. CLINDAMYCIN HYDROCHLORIDE [Concomitant]
     Active Substance: CLINDAMYCIN HYDROCHLORIDE
  4. MELOXICAM [Concomitant]
     Active Substance: MELOXICAM
  5. SERTRALINE HYDROCHLORIDE [Concomitant]
     Active Substance: SERTRALINE HYDROCHLORIDE
  6. VITAMIN D3 [Concomitant]
     Active Substance: CHOLECALCIFEROL
  7. BETAMETHASONE VALERATE [Concomitant]
     Active Substance: BETAMETHASONE VALERATE
     Route: 065
  8. FOLIC ACID [Concomitant]
     Active Substance: FOLIC ACID
  9. MUPIROCIN [Concomitant]
     Active Substance: MUPIROCIN
     Route: 065
  10. TIZANIDINE [Concomitant]
     Active Substance: TIZANIDINE
     Route: 065
  11. TYLENOL [Concomitant]
     Active Substance: ACETAMINOPHEN
     Route: 065

REACTIONS (1)
  - Sialoadenitis [Recovering/Resolving]
